FAERS Safety Report 8570606-7 (Version None)
Quarter: 2012Q3

REPORT INFORMATION
  Report Type: 
  Country: None (occurrence: None)
  Receive Date: 20120804
  Receipt Date: 20120723
  Transmission Date: 20120928
  Serious: No
  Sender: FDA-Public Use
  Company Number: US-ASTRAZENECA-2012SE52303

PATIENT
  Age: 48 Year
  Sex: Female

DRUGS (1)
  1. CRESTOR [Suspect]
     Route: 048

REACTIONS (4)
  - DIABETES MELLITUS [None]
  - DRUG DOSE OMISSION [None]
  - HYPERTENSION [None]
  - WEIGHT INCREASED [None]
